FAERS Safety Report 6590983-6 (Version None)
Quarter: 2010Q1

REPORT INFORMATION
  Report Type: 
  Country: None (occurrence: None)
  Receive Date: 20100219
  Receipt Date: 20100210
  Transmission Date: 20100710
  Serious: Yes (Hospitalization)
  Sender: FDA-Public Use
  Company Number: CZ-ELI_LILLY_AND_COMPANY-CZ201002000059

PATIENT
  Sex: Male
  Weight: 110 kg

DRUGS (12)
  1. BYETTA [Suspect]
     Indication: TYPE 2 DIABETES MELLITUS
     Dosage: 5 UG, 2/D
     Route: 058
     Dates: start: 20090609, end: 20090819
  2. BYETTA [Suspect]
     Dosage: 10 UG, 2/D
     Route: 058
     Dates: start: 20090820, end: 20100113
  3. GLUCOPHAGE [Concomitant]
     Indication: TYPE 2 DIABETES MELLITUS
     Dosage: UNK, UNKNOWN
     Route: 048
     Dates: end: 20100113
  4. DIAPREL [Concomitant]
     Indication: TYPE 2 DIABETES MELLITUS
     Dosage: UNK, UNKNOWN
     Route: 048
     Dates: end: 20100113
  5. ACTOS [Concomitant]
     Indication: TYPE 2 DIABETES MELLITUS
     Dosage: UNK, UNKNOWN
     Route: 048
     Dates: end: 20100113
  6. TRITACE [Concomitant]
     Indication: HYPERTENSION
     Dosage: 10 MG, DAILY (1/D)
     Route: 048
     Dates: end: 20100113
  7. HYDROCHLOROTHIAZIDE [Concomitant]
     Indication: HYPERTENSION
     Dosage: UNK, UNKNOWN
     Route: 048
     Dates: end: 20100113
  8. LETROX [Concomitant]
     Indication: HYPOTHYROIDISM
     Dosage: 150 MG, DAILY (1/D)
     Route: 048
     Dates: end: 20100113
  9. ANOPYRIN [Concomitant]
     Indication: ISCHAEMIC HEART DISEASE PROPHYLAXIS
     Dosage: 100 MG, UNK
     Route: 048
     Dates: end: 20100113
  10. PLAVIX [Concomitant]
     Indication: ISCHAEMIC HEART DISEASE PROPHYLAXIS
     Dosage: 75 MG, DAILY (1/D)
     Route: 048
     Dates: end: 20100113
  11. ATORVASTATIN CALCIUM [Concomitant]
     Indication: HYPERLIPIDAEMIA
     Dosage: 20 MG, DAILY (1/D)
     Route: 048
     Dates: end: 20100113
  12. MILURIT [Concomitant]
     Dosage: 100 MG, DAILY (1/D)
     Route: 048
     Dates: end: 20100113

REACTIONS (7)
  - AGITATION [None]
  - CARDIOPULMONARY FAILURE [None]
  - CHRONIC OBSTRUCTIVE PULMONARY DISEASE [None]
  - HEPATIC STEATOSIS [None]
  - HEPATOMEGALY [None]
  - HYPERTENSION [None]
  - PANCREATITIS ACUTE [None]
